FAERS Safety Report 8599464-1 (Version None)
Quarter: 2012Q3

REPORT INFORMATION
  Report Type: 
  Country: None (occurrence: None)
  Receive Date: 20120816
  Receipt Date: 20120814
  Transmission Date: 20120928
  Serious: Yes (Hospitalization)
  Sender: FDA-Public Use
  Company Number: TR-EISAI INC-E2020-10910-SPO-TR

PATIENT
  Age: 85 Year
  Sex: Male

DRUGS (5)
  1. ISOSORBIDE MONONITRATE [Concomitant]
     Indication: CORONARY ARTERY DISEASE
  2. DONEPEZIL HCL [Suspect]
     Route: 048
  3. TRANDOLAPRIL [Concomitant]
  4. ACETYLSALICYLIC ACID SRT [Concomitant]
     Indication: CORONARY ARTERY DISEASE
  5. TRIMTAZIDINE [Concomitant]
     Indication: CORONARY ARTERY DISEASE

REACTIONS (3)
  - ATRIOVENTRICULAR BLOCK SECOND DEGREE [None]
  - SYNCOPE [None]
  - DIZZINESS [None]
